FAERS Safety Report 20803573 (Version 2)
Quarter: 2022Q3

REPORT INFORMATION
  Report Type: Spontaneous
  Country: US (occurrence: US)
  Receive Date: 20220509
  Receipt Date: 20220708
  Transmission Date: 20221027
  Serious: No
  Sender: FDA-Public Use
  Company Number: US-PFIZER INC-202200396739

PATIENT
  Age: 74 Year
  Sex: Female

DRUGS (1)
  1. IBRANCE [Suspect]
     Active Substance: PALBOCICLIB
     Indication: Breast cancer female
     Dosage: 75 MG
     Dates: start: 20210209

REACTIONS (8)
  - Stomatitis [Unknown]
  - Muscle spasms [Unknown]
  - Diarrhoea [Unknown]
  - Nerve injury [Unknown]
  - Fatigue [Unknown]
  - Headache [Unknown]
  - Anaemia [Unknown]
  - Nausea [Unknown]
